FAERS Safety Report 10182638 (Version 1)
Quarter: 2014Q2

REPORT INFORMATION
  Report Type: Spontaneous
  Country: US (occurrence: None)
  Receive Date: 20140519
  Receipt Date: 20140519
  Transmission Date: 20141212
  Serious: Yes (Hospitalization)
  Sender: FDA-Public Use
  Company Number: None

PATIENT
  Age: 62 Year
  Sex: Female

DRUGS (15)
  1. COPAXONE 40 MG TEVA NEUROSCIENCE [Suspect]
     Indication: MULTIPLE SCLEROSIS
     Route: 058
     Dates: start: 20140307
  2. ASPIRIN [Concomitant]
  3. VICODIN EF [Concomitant]
  4. ATIVAN [Concomitant]
  5. PRIOLSEC [Concomitant]
  6. MOBIC [Concomitant]
  7. ADDERALL [Concomitant]
  8. PROMETHAZINE [Concomitant]
  9. NAMENDA [Concomitant]
  10. SIMVASTATIN [Concomitant]
  11. CYMBALTA [Concomitant]
  12. OMEPRAZOLE [Concomitant]
  13. MELATONIN [Concomitant]
  14. SEROQUEL [Concomitant]
  15. NEURONTIN [Concomitant]

REACTIONS (1)
  - Multiple sclerosis relapse [None]
